FAERS Safety Report 7198348-3 (Version None)
Quarter: 2010Q4

REPORT INFORMATION
  Report Type: 
  Country: None (occurrence: None)
  Receive Date: 20101213
  Receipt Date: 20101129
  Transmission Date: 20110411
  Serious: Yes (Hospitalization)
  Sender: FDA-Public Use
  Company Number: 2010JP006216

PATIENT
  Age: 46 Year
  Sex: Male

DRUGS (11)
  1. PROGRAF [Suspect]
     Indication: RENAL TRANSPLANT
     Dosage: 10 MG/D, ORAL; 6 MG/D, /BID, ORAL; 4 MG/D, ORAL
     Route: 048
     Dates: end: 20100415
  2. PROGRAF [Suspect]
     Indication: RENAL TRANSPLANT
     Dosage: 10 MG/D, ORAL; 6 MG/D, /BID, ORAL; 4 MG/D, ORAL
     Route: 048
     Dates: start: 20100314
  3. PROGRAF [Suspect]
     Indication: RENAL TRANSPLANT
     Dosage: 10 MG/D, ORAL; 6 MG/D, /BID, ORAL; 4 MG/D, ORAL
     Route: 048
     Dates: start: 20100416
  4. CELLCEPT (MYCOPHENOLATE MOFETIL) TABLET [Concomitant]
  5. PREDNISOLONE [Concomitant]
  6. RITUXIMAB (RITUXIMAB) FORMULATION UNKNOWN [Concomitant]
  7. BASILIXIMAB (BASILIXIMAB) FORMULATION UNKNOWN [Concomitant]
  8. IMMUNOGLOBULIN (IMMUNOGLOBULIN) INJECTION [Concomitant]
  9. LANSOPRAZOLE [Concomitant]
  10. BAKTAR (SULFAMETHOXAZOLE, TRIMETHOPRIM) TABLET [Concomitant]
  11. LASIX [Concomitant]

REACTIONS (1)
  - THROMBOTIC MICROANGIOPATHY [None]
